FAERS Safety Report 20212923 (Version 3)
Quarter: 2022Q1

REPORT INFORMATION
  Report Type: Report from Study
  Country: US (occurrence: US)
  Receive Date: 20211221
  Receipt Date: 20220316
  Transmission Date: 20220424
  Serious: No
  Sender: FDA-Public Use
  Company Number: US-NOVARTISTESTPH-NVSC2021US290360

PATIENT
  Sex: Female

DRUGS (2)
  1. COSENTYX [Suspect]
     Active Substance: SECUKINUMAB
     Indication: Psoriasis
     Dosage: 300 MG, ONCE A WEEK FOR 5 WEEKS AND THEN Q4
     Route: 058
  2. COSENTYX [Suspect]
     Active Substance: SECUKINUMAB
     Indication: Psoriatic arthropathy

REACTIONS (9)
  - Arthralgia [Not Recovered/Not Resolved]
  - Accident [Not Recovered/Not Resolved]
  - Psoriasis [Recovering/Resolving]
  - Skin fissures [Recovering/Resolving]
  - Skin haemorrhage [Recovering/Resolving]
  - Skin hypertrophy [Recovering/Resolving]
  - Skin exfoliation [Recovering/Resolving]
  - Pruritus [Recovering/Resolving]
  - Pain of skin [Recovering/Resolving]
